FAERS Safety Report 19043022 (Version 1)
Quarter: 2021Q1

REPORT INFORMATION
  Report Type: Spontaneous
  Country: IR (occurrence: IR)
  Receive Date: 20210323
  Receipt Date: 20210323
  Transmission Date: 20210420
  Serious: Yes (Other)
  Sender: FDA-Public Use
  Company Number: IR-ACCORD-219989

PATIENT
  Age: 58 Year
  Sex: Male

DRUGS (14)
  1. RITUXIMAB. [Suspect]
     Active Substance: RITUXIMAB
     Indication: SJOGREN^S SYNDROME
  2. HYDROXYCHLOROQUINE [Concomitant]
     Active Substance: HYDROXYCHLOROQUINE
     Indication: LUPUS NEPHRITIS
  3. ERYTHROPOIETIN [Concomitant]
     Active Substance: ERYTHROPOIETIN
     Indication: SJOGREN^S SYNDROME
     Dosage: 4000 IU/SC THREE TIMES A WEEK
     Route: 058
  4. HYDROXYCHLOROQUINE [Concomitant]
     Active Substance: HYDROXYCHLOROQUINE
     Indication: SJOGREN^S SYNDROME
  5. MYCOPHENOLIC ACID. [Suspect]
     Active Substance: MYCOPHENOLIC ACID
     Indication: SJOGREN^S SYNDROME
  6. LOSARTAN. [Concomitant]
     Active Substance: LOSARTAN
     Indication: SJOGREN^S SYNDROME
  7. ERYTHROPOIETIN [Concomitant]
     Active Substance: ERYTHROPOIETIN
     Indication: LUPUS NEPHRITIS
     Dosage: 4000 IU/SC THREE TIMES A WEEK
     Route: 058
  8. RITUXIMAB. [Suspect]
     Active Substance: RITUXIMAB
     Indication: SJOGREN^S SYNDROME
  9. PREDNISOLONE. [Suspect]
     Active Substance: PREDNISOLONE
     Indication: SJOGREN^S SYNDROME
  10. LOSARTAN. [Concomitant]
     Active Substance: LOSARTAN
     Indication: SJOGREN^S SYNDROME
  11. PREDNISOLONE. [Suspect]
     Active Substance: PREDNISOLONE
     Indication: SJOGREN^S SYNDROME
  12. TACROLIMUS. [Suspect]
     Active Substance: TACROLIMUS
     Indication: SJOGREN^S SYNDROME
  13. MYCOPHENOLATE MOFETIL. [Suspect]
     Active Substance: MYCOPHENOLATE MOFETIL
     Indication: SJOGREN^S SYNDROME
  14. TACROLIMUS. [Suspect]
     Active Substance: TACROLIMUS
     Indication: LUPUS NEPHRITIS

REACTIONS (4)
  - Abnormal loss of weight [Recovering/Resolving]
  - Malacoplakia gastrointestinal [Recovering/Resolving]
  - Normochromic normocytic anaemia [Recovering/Resolving]
  - Rectal polyp [Recovering/Resolving]
